FAERS Safety Report 16698301 (Version 1)
Quarter: 2019Q3

REPORT INFORMATION
  Report Type: Report from Study
  Country: JP (occurrence: JP)
  Receive Date: 20190813
  Receipt Date: 20190813
  Transmission Date: 20191004
  Serious: Yes (Hospitalization)
  Sender: FDA-Public Use
  Company Number: JP-BAYER-2019-137510

PATIENT
  Sex: Female

DRUGS (1)
  1. STIVARGA [Suspect]
     Active Substance: REGORAFENIB
     Indication: COLORECTAL CANCER
     Dosage: UNK
     Route: 048
     Dates: start: 20190718, end: 20190726

REACTIONS (9)
  - Dysphonia [None]
  - Hospitalisation [None]
  - Erythema [None]
  - Feeling abnormal [None]
  - Pain in extremity [None]
  - Generalised erythema [None]
  - Dizziness [None]
  - Musculoskeletal stiffness [None]
  - Pigmentation disorder [None]
